FAERS Safety Report 25736866 (Version 1)
Quarter: 2025Q3

REPORT INFORMATION
  Report Type: Spontaneous
  Country: CH (occurrence: CH)
  Receive Date: 20250828
  Receipt Date: 20250828
  Transmission Date: 20251021
  Serious: Yes (Hospitalization, Other)
  Sender: TEVA
  Company Number: CH-TEVA-VS-3365005

PATIENT
  Age: 71 Year
  Sex: Female

DRUGS (6)
  1. CARBOPLATIN [Suspect]
     Active Substance: CARBOPLATIN
     Indication: Ovarian epithelial cancer
     Dosage: AUC 6; SIX CYCLES
     Route: 065
     Dates: start: 2020
  2. OLAPARIB [Suspect]
     Active Substance: OLAPARIB
     Indication: Ovarian epithelial cancer
     Route: 065
     Dates: start: 202009, end: 202011
  3. OLAPARIB [Suspect]
     Active Substance: OLAPARIB
     Indication: Ovarian epithelial cancer
     Route: 065
     Dates: start: 202101, end: 202209
  4. OLAPARIB [Suspect]
     Active Substance: OLAPARIB
     Indication: Ovarian epithelial cancer
     Route: 065
  5. BEVACIZUMAB [Suspect]
     Active Substance: BEVACIZUMAB
     Indication: Ovarian epithelial cancer
     Route: 065
     Dates: start: 2020, end: 2020
  6. PACLITAXEL [Suspect]
     Active Substance: PACLITAXEL
     Indication: Ovarian epithelial cancer
     Dosage: SIX CYCLES
     Route: 065
     Dates: start: 2020

REACTIONS (6)
  - Nervous system disorder [Unknown]
  - Autoimmune haemolytic anaemia [Recovered/Resolved]
  - Myelofibrosis [Recovering/Resolving]
  - Anaemia [Recovered/Resolved]
  - Toxicity to various agents [Unknown]
  - Cytopenia [Recovering/Resolving]

NARRATIVE: CASE EVENT DATE: 20200101
